FAERS Safety Report 18717389 (Version 1)
Quarter: 2021Q1

REPORT INFORMATION
  Report Type: Spontaneous
  Country: US (occurrence: US)
  Receive Date: 20210108
  Receipt Date: 20210108
  Transmission Date: 20210419
  Serious: No
  Sender: FDA-Public Use
  Company Number: US-AMNEAL PHARMACEUTICALS-2020-AMRX-03340

PATIENT
  Sex: Male
  Weight: 9 kg

DRUGS (4)
  1. VIGABATRIN. [Suspect]
     Active Substance: VIGABATRIN
     Indication: INFANTILE SPASMS
     Dosage: 175 MILLIGRAM, 2 /DAY (MIX 1 PACKET IN 10 ML WATER AND GIVE 3.5ML)
     Route: 065
     Dates: start: 2020, end: 2020
  2. VIGABATRIN. [Suspect]
     Active Substance: VIGABATRIN
     Dosage: 500 MILLIGRAM, 2 /DAY (MIX 1 PACKET IN 10 ML WATER AND GIVE 10ML)
     Route: 065
     Dates: start: 2020, end: 2020
  3. VIGABATRIN. [Suspect]
     Active Substance: VIGABATRIN
     Dosage: 900 MILLIGRAM, 2 /DAY
     Route: 065
     Dates: start: 2020
  4. VIGABATRIN. [Suspect]
     Active Substance: VIGABATRIN
     Dosage: 350 MILLIGRAM, 2 /DAY (MIX 1 PACKET IN 10 ML WATER AND GIVE 7ML)
     Route: 065
     Dates: start: 2020, end: 2020

REACTIONS (1)
  - Drug ineffective [Unknown]

NARRATIVE: CASE EVENT DATE: 2020
